FAERS Safety Report 16662325 (Version 2)
Quarter: 2020Q1

REPORT INFORMATION
  Report Type: Report from Study
  Country: US (occurrence: US)
  Receive Date: 20190802
  Receipt Date: 20200129
  Transmission Date: 20200409
  Serious: No
  Sender: FDA-Public Use
  Company Number: US-EXELIXIS-CABO-19018243

PATIENT
  Sex: Female

DRUGS (15)
  1. PEPCID [Concomitant]
     Active Substance: FAMOTIDINE
  2. METFORMIN HCL [Concomitant]
     Active Substance: METFORMIN HYDROCHLORIDE
  3. ASPIRIN. [Concomitant]
     Active Substance: ASPIRIN
  4. CABOMETYX [Suspect]
     Active Substance: CABOZANTINIB S-MALATE
     Indication: RENAL CANCER
     Dosage: 60 MG, QD
     Route: 048
     Dates: start: 20171010, end: 201901
  5. PRAVASTATIN SODIUM. [Concomitant]
     Active Substance: PRAVASTATIN SODIUM
  6. IRON [Concomitant]
     Active Substance: IRON
  7. FAMOTIDINE. [Concomitant]
     Active Substance: FAMOTIDINE
  8. AMLODIPINE BESYLATE. [Concomitant]
     Active Substance: AMLODIPINE BESYLATE
  9. PROCARDIA [Concomitant]
     Active Substance: NIFEDIPINE
  10. WARFARIN SODIUM. [Concomitant]
     Active Substance: WARFARIN SODIUM
  11. CLARITIN [Concomitant]
     Active Substance: LORATADINE
  12. CEPHALEXIN. [Concomitant]
     Active Substance: CEPHALEXIN
  13. ZIAC [Concomitant]
     Active Substance: BISOPROLOL FUMARATE\HYDROCHLOROTHIAZIDE
  14. LEVOTHYROXINE SODIUM. [Concomitant]
     Active Substance: LEVOTHYROXINE SODIUM
  15. COUMADIN [Concomitant]
     Active Substance: WARFARIN SODIUM

REACTIONS (3)
  - Fatigue [Unknown]
  - Vitamin D decreased [Unknown]
  - Blood iron decreased [Unknown]
